FAERS Safety Report 9124671 (Version 1)
Quarter: 2013Q1

REPORT INFORMATION
  Report Type: Spontaneous
  Country: CZ (occurrence: CZ)
  Receive Date: 20130227
  Receipt Date: 20130227
  Transmission Date: 20140127
  Serious: Yes (Life-Threatening, Other)
  Sender: FDA-Public Use
  Company Number: CZ-TEVA-387613ISR

PATIENT
  Age: 52 None
  Sex: Female

DRUGS (5)
  1. CYCLOPLATIN 150 [Suspect]
     Indication: OVARIAN CANCER
     Route: 041
     Dates: start: 20130118
  2. CYCLOPLATIN 450 [Suspect]
     Indication: OVARIAN CANCER
     Route: 041
     Dates: start: 20130118
  3. CITALEC [Concomitant]
     Route: 048
  4. HELICID [Concomitant]
     Route: 048
  5. FORTECORTIN [Concomitant]
     Route: 048

REACTIONS (4)
  - Anaphylactic reaction [Recovered/Resolved]
  - Apnoea [Recovered/Resolved]
  - Hypotension [Recovered/Resolved]
  - Loss of consciousness [Recovered/Resolved]
